FAERS Safety Report 18036357 (Version 6)
Quarter: 2020Q4

REPORT INFORMATION
  Report Type: Report from Study
  Country: US (occurrence: US)
  Receive Date: 20200717
  Receipt Date: 20201022
  Transmission Date: 20210113
  Serious: Yes (Other)
  Sender: FDA-Public Use
  Company Number: NVSC2020US200670

PATIENT
  Sex: Female

DRUGS (3)
  1. PIQRAY [Suspect]
     Active Substance: ALPELISIB
     Dosage: 150 MG, QD
     Route: 065
  2. PIQRAY [Suspect]
     Active Substance: ALPELISIB
     Indication: PRODUCT USED FOR UNKNOWN INDICATION
     Dosage: 50 MG, QD
     Route: 048
  3. PIQRAY [Suspect]
     Active Substance: ALPELISIB
     Dosage: UNK
     Route: 048

REACTIONS (20)
  - Dysuria [Unknown]
  - Blood glucose increased [Unknown]
  - Diarrhoea [Unknown]
  - Malaise [Unknown]
  - Hyperglycaemia [Unknown]
  - Condition aggravated [Unknown]
  - Nausea [Unknown]
  - Weight decreased [Unknown]
  - Peripheral swelling [Unknown]
  - Fatigue [Unknown]
  - Dysgeusia [Unknown]
  - Metastases to central nervous system [Unknown]
  - Eating disorder [Unknown]
  - Dizziness [Unknown]
  - Adverse event [Recovered/Resolved with Sequelae]
  - Sinus tachycardia [Unknown]
  - Central nervous system lesion [Unknown]
  - Decreased appetite [Unknown]
  - Tumour marker decreased [Unknown]
  - Tumour marker increased [Unknown]
